FAERS Safety Report 4440858-3 (Version None)
Quarter: 2004Q3

REPORT INFORMATION
  Report Type: 
  Country: None (occurrence: None)
  Receive Date: 20040831
  Receipt Date: 20040817
  Transmission Date: 20050211
  Serious: Yes (Hospitalization)
  Sender: FDA-Public Use
  Company Number: 2004S1000169

PATIENT
  Age: 72 Year
  Sex: Male
  Weight: 121 kg

DRUGS (9)
  1. CUBICIN [Suspect]
     Indication: ARTHRITIS BACTERIAL
     Dosage: 450 MG;Q24H;IV
     Route: 042
     Dates: start: 20040519, end: 20040716
  2. CUBICIN [Suspect]
     Indication: STAPHYLOCOCCAL INFECTION
     Dosage: 450 MG;Q24H;IV
     Route: 042
     Dates: start: 20040519, end: 20040716
  3. CRESTOR [Concomitant]
  4. LISINOPRIL [Concomitant]
  5. DITROPAN [Concomitant]
  6. PAXIL [Concomitant]
  7. AVANDIA [Concomitant]
  8. GLUCOPHAGE [Concomitant]
  9. VANCOMYCIN [Concomitant]

REACTIONS (8)
  - ALANINE AMINOTRANSFERASE INCREASED [None]
  - ARTHRALGIA [None]
  - ASPARTATE AMINOTRANSFERASE INCREASED [None]
  - BLOOD CREATININE INCREASED [None]
  - PYREXIA [None]
  - RED BLOOD CELL SEDIMENTATION RATE INCREASED [None]
  - RHABDOMYOLYSIS [None]
  - THERAPY NON-RESPONDER [None]
